FAERS Safety Report 7287101-8 (Version None)
Quarter: 2011Q1

REPORT INFORMATION
  Report Type: 
  Country: None (occurrence: None)
  Receive Date: 20110211
  Receipt Date: 20090805
  Transmission Date: 20110831
  Serious: No
  Sender: FDA-Public Use
  Company Number: 2009BI025122

PATIENT
  Age: 46 Year
  Sex: Female

DRUGS (1)
  1. TYSABRI [Suspect]
     Indication: MULTIPLE SCLEROSIS
     Route: 042
     Dates: start: 20080904, end: 20100419

REACTIONS (6)
  - GASTROINTESTINAL DISORDER [None]
  - DYSPHONIA [None]
  - AFFECT LABILITY [None]
  - SEASONAL AFFECTIVE DISORDER [None]
  - MULTIPLE SCLEROSIS RELAPSE [None]
  - CRYING [None]
